FAERS Safety Report 7189498-6 (Version None)
Quarter: 2010Q4

REPORT INFORMATION
  Report Type: 
  Country: None (occurrence: None)
  Receive Date: 20101223
  Receipt Date: 20101213
  Transmission Date: 20110411
  Serious: Yes (Hospitalization)
  Sender: FDA-Public Use
  Company Number: 160567

PATIENT
  Age: 34 Year
  Sex: Female

DRUGS (3)
  1. AVONEX [Suspect]
     Indication: MULTIPLE SCLEROSIS
     Route: 030
     Dates: start: 20001215, end: 20020330
  2. AVONEX [Suspect]
     Route: 030
     Dates: start: 20040310, end: 20090306
  3. MEDICATION (NOS) [Concomitant]
     Indication: HYPERTENSION

REACTIONS (7)
  - BLINDNESS [None]
  - DRUG INEFFECTIVE [None]
  - FATIGUE [None]
  - HYPOAESTHESIA [None]
  - INJECTION SITE HAEMATOMA [None]
  - NEUROFIBROMA [None]
  - NEUROFIBROMATOSIS [None]
